FAERS Safety Report 9132871 (Version 1)
Quarter: 2013Q1

REPORT INFORMATION
  Report Type: Spontaneous
  Country: DE (occurrence: DE)
  Receive Date: 20130301
  Receipt Date: 20130301
  Transmission Date: 20140127
  Serious: Yes (Other)
  Sender: FDA-Public Use
  Company Number: DE-ROCHE-1194211

PATIENT
  Sex: Female

DRUGS (3)
  1. HERCEPTIN [Suspect]
     Indication: BREAST CANCER METASTATIC
     Route: 042
  2. PERJETA [Suspect]
     Indication: BREAST CANCER METASTATIC
     Route: 042
  3. TAXOTERE [Concomitant]
     Indication: BREAST CANCER METASTATIC
     Route: 042

REACTIONS (4)
  - Diarrhoea [Unknown]
  - Hypersensitivity [Unknown]
  - Rash pruritic [Unknown]
  - White blood cell count decreased [Unknown]
